FAERS Safety Report 21190171 (Version 2)
Quarter: 2022Q4

REPORT INFORMATION
  Report Type: Report from Study
  Country: CO (occurrence: CO)
  Receive Date: 20220809
  Receipt Date: 20221019
  Transmission Date: 20230113
  Serious: Yes (Hospitalization)
  Sender: FDA-Public Use
  Company Number: CO-NOVARTISPH-NVSC2022CO157570

PATIENT
  Age: 35 Year
  Sex: Female
  Weight: 56 kg

DRUGS (3)
  1. AFINITOR [Suspect]
     Active Substance: EVEROLIMUS
     Indication: Breast cancer
     Dosage: 10 MG, Q24H
     Route: 048
     Dates: start: 202204
  2. AFINITOR [Suspect]
     Active Substance: EVEROLIMUS
     Dosage: 10 MG, QD
     Route: 048
  3. ERIBULIN [Concomitant]
     Active Substance: ERIBULIN
     Indication: Metastases to liver
     Dosage: UNK (1 AND 8 OF EVERY 21 DAYS CYCLE)
     Route: 065

REACTIONS (11)
  - Myalgia [Recovering/Resolving]
  - Liver abscess [Recovering/Resolving]
  - Abdominal pain [Recovering/Resolving]
  - COVID-19 [Unknown]
  - Oropharyngeal pain [Unknown]
  - Malaise [Unknown]
  - Pyrexia [Unknown]
  - Epistaxis [Unknown]
  - Platelet count decreased [Unknown]
  - Stomatitis [Recovered/Resolved]
  - Drug ineffective [Unknown]

NARRATIVE: CASE EVENT DATE: 20220701
